FAERS Safety Report 6208858-0 (Version None)
Quarter: 2009Q2

REPORT INFORMATION
  Report Type: 
  Country: None (occurrence: None)
  Receive Date: 20090529
  Receipt Date: 20090521
  Transmission Date: 20091009
  Serious: Yes (Hospitalization)
  Sender: FDA-Public Use
  Company Number: A0786524A

PATIENT
  Sex: Female
  Weight: 60 kg

DRUGS (5)
  1. SERETIDE [Suspect]
     Indication: ALLERGIC COUGH
     Dosage: 1PUFF TWICE PER DAY
     Dates: start: 20090401
  2. IMURAN [Concomitant]
     Dosage: 1TAB TWICE PER DAY
     Dates: start: 20080101
  3. DIOVAN [Concomitant]
     Dosage: 1TAB PER DAY
     Dates: start: 20070101
  4. EZETIMIBE + SIMVASTATIN [Concomitant]
     Dosage: 1TAB PER DAY
     Dates: start: 20080101
  5. ASPIRIN [Concomitant]
     Dosage: 1TAB PER DAY

REACTIONS (3)
  - ANAEMIA [None]
  - INFECTION [None]
  - SINUSITIS [None]
